FAERS Safety Report 4453504-X (Version None)
Quarter: 2004Q3

REPORT INFORMATION
  Report Type: 
  Country: None (occurrence: None)
  Receive Date: 20040830
  Receipt Date: 20040610
  Transmission Date: 20050211
  Serious: Yes (Hospitalization)
  Sender: FDA-Public Use
  Company Number: 298

PATIENT
  Age: 53 Year
  Sex: Female
  Weight: 72.5755 kg

DRUGS (2)
  1. FLUOXETINE HCL [Suspect]
     Indication: DEPRESSION
     Dosage: ORA - 20 MG PER DAY
     Route: 048
     Dates: start: 20040428, end: 20040523
  2. PREVACID [Concomitant]

REACTIONS (3)
  - AGITATION [None]
  - OVERDOSE [None]
  - SUICIDE ATTEMPT [None]
